FAERS Safety Report 7260734-0 (Version None)
Quarter: 2011Q1

REPORT INFORMATION
  Report Type: 
  Country: None (occurrence: None)
  Receive Date: 20110130
  Receipt Date: 20101221
  Transmission Date: 20110831
  Serious: No
  Sender: FDA-Public Use
  Company Number: US-ABBOTT-10P-163-0693425-00

PATIENT
  Age: 21 Year
  Sex: Female

DRUGS (3)
  1. ORTHO TRI-CYCLEN [Concomitant]
     Indication: CONTRACEPTION
  2. INDOMETHACIN [Concomitant]
     Indication: ANKYLOSING SPONDYLITIS
  3. HUMIRA [Suspect]
     Indication: ANKYLOSING SPONDYLITIS
     Dates: start: 20100901

REACTIONS (1)
  - HAIR DISORDER [None]
